FAERS Safety Report 7361490-8 (Version None)
Quarter: 2011Q1

REPORT INFORMATION
  Report Type: 
  Country: None (occurrence: None)
  Receive Date: 20110318
  Receipt Date: 20110307
  Transmission Date: 20110831
  Serious: Yes (Other)
  Sender: FDA-Public Use
  Company Number: PHHY2011FR19300

PATIENT
  Age: 18 Year
  Sex: Male

DRUGS (1)
  1. TEGRETOL [Suspect]
     Indication: EPILEPSY
     Dosage: 400 MG, BID

REACTIONS (5)
  - MOOD ALTERED [None]
  - AGGRESSION [None]
  - PHYSICAL ABUSE [None]
  - ABNORMAL BEHAVIOUR [None]
  - AMNESIA [None]
